FAERS Safety Report 5328288-3 (Version None)
Quarter: 2007Q2

REPORT INFORMATION
  Report Type: 
  Country: None (occurrence: None)
  Receive Date: 20070518
  Receipt Date: 20070514
  Transmission Date: 20071010
  Serious: Yes (Other)
  Sender: FDA-Public Use
  Company Number: PHEH2007US07086

PATIENT
  Age: 54 Year
  Sex: Male

DRUGS (1)
  1. CLOZARIL [Suspect]

REACTIONS (9)
  - CONSTIPATION [None]
  - DIZZINESS [None]
  - DROOLING [None]
  - FATIGUE [None]
  - HALLUCINATION, AUDITORY [None]
  - LUNG DISORDER [None]
  - MALAISE [None]
  - OCULOGYRATION [None]
  - SPEECH DISORDER [None]
